FAERS Safety Report 8344238-X (Version None)
Quarter: 2012Q2

REPORT INFORMATION
  Report Type: 
  Country: None (occurrence: None)
  Receive Date: 20120402
  Receipt Date: 20111205
  Transmission Date: 20120825
  Serious: Yes (Other)
  Sender: FDA-Public Use
  Company Number: 312275USA

PATIENT
  Sex: Female

DRUGS (1)
  1. VENLAFAXINE [Suspect]
     Dosage: TWO CAPSULES FOR A TOTAL OF 300MG (150 MG)
     Dates: start: 20110401

REACTIONS (4)
  - NAUSEA [None]
  - DIZZINESS [None]
  - WITHDRAWAL SYNDROME [None]
  - BURNING SENSATION [None]
